FAERS Safety Report 13261441 (Version 1)
Quarter: 2017Q1

REPORT INFORMATION
  Report Type: Spontaneous
  Country: US (occurrence: US)
  Receive Date: 20170222
  Receipt Date: 20170222
  Transmission Date: 20170428
  Serious: No
  Sender: FDA-Public Use
  Company Number: US-BAYER-2017-035148

PATIENT
  Age: 34 Year
  Sex: Female
  Weight: 66 kg

DRUGS (1)
  1. ALEVE PM [Suspect]
     Active Substance: DIPHENHYDRAMINE HYDROCHLORIDE\NAPROXEN SODIUM
     Indication: INSOMNIA
     Dosage: 3 DF, QD ( TOOK 2 AND AFTER 1,5 HOURS LATER TOOK 1)
     Route: 048
     Dates: start: 20170218, end: 20170218

REACTIONS (2)
  - Product use issue [Unknown]
  - Product use issue [None]

NARRATIVE: CASE EVENT DATE: 20170218
